FAERS Safety Report 9161495 (Version 1)
Quarter: 2012Q4

REPORT INFORMATION
  Report Type: 
  Country: US (occurrence: US)
  Receive Date: 20121231
  Receipt Date: 20121231
  Transmission Date: 20130627
  Serious: Yes (Other)
  Sender: FDA-Public Use
  Company Number: US-RB-047962-12

PATIENT
  Age: 18 Year
  Sex: Male
  Weight: 72 kg

DRUGS (1)
  1. DELSYM ADULT GRAPE [Suspect]
     Indication: DRUG ABUSE
     Dosage: Drank an entire 3 ounce bottle of the product
     Route: 048
     Dates: start: 20121220

REACTIONS (4)
  - Drug abuse [Not Recovered/Not Resolved]
  - Euphoric mood [Not Recovered/Not Resolved]
  - Mydriasis [Not Recovered/Not Resolved]
  - Gait disturbance [Not Recovered/Not Resolved]
